FAERS Safety Report 16648665 (Version 1)
Quarter: 2019Q3

REPORT INFORMATION
  Report Type: Spontaneous
  Country: US (occurrence: US)
  Receive Date: 20190730
  Receipt Date: 20190730
  Transmission Date: 20191004
  Serious: Yes (Hospitalization)
  Sender: FDA-Public Use
  Company Number: US-IBSA PHARMA-TIR-2019-0374

PATIENT
  Age: 62 Year
  Sex: Female

DRUGS (2)
  1. TIROSINT [Suspect]
     Active Substance: LEVOTHYROXINE SODIUM
     Indication: HYPOTHYROIDISM
     Dosage: 25MCG DAILY
     Route: 048
  2. VITAMIN B12 [Concomitant]
     Active Substance: CYANOCOBALAMIN
     Indication: PRODUCT USED FOR UNKNOWN INDICATION
     Dosage: EVERY 6 WEEKS

REACTIONS (2)
  - Atrial fibrillation [Unknown]
  - Palpitations [Unknown]

NARRATIVE: CASE EVENT DATE: 20190403
